FAERS Safety Report 8446155-3 (Version None)
Quarter: 2012Q2

REPORT INFORMATION
  Report Type: 
  Country: None (occurrence: None)
  Receive Date: 20120618
  Receipt Date: 20120614
  Transmission Date: 20120825
  Serious: Yes (Hospitalization, Other)
  Sender: FDA-Public Use
  Company Number: IL-PFIZER INC-2012136714

PATIENT
  Age: 62 Year
  Sex: Female

DRUGS (1)
  1. VARENICLINE TARTRATE [Suspect]
     Indication: SMOKING CESSATION THERAPY
     Dosage: TWICE DAILY (TOTAL DAILY DOSE 2MG)
     Route: 048
     Dates: start: 20120522

REACTIONS (8)
  - DIZZINESS [None]
  - VOMITING [None]
  - HEADACHE [None]
  - PYREXIA [None]
  - OROPHARYNGEAL PAIN [None]
  - ASTHENIA [None]
  - DEHYDRATION [None]
  - FEELING ABNORMAL [None]
